FAERS Safety Report 8956910 (Version 1)
Quarter: 2012Q4

REPORT INFORMATION
  Report Type: 
  Country: US (occurrence: US)
  Receive Date: 20121211
  Receipt Date: 20121211
  Transmission Date: 20130627
  Serious: Yes (Hospitalization)
  Sender: FDA-Public Use
  Company Number: US-ASTRAZENECA-2012SE91010

PATIENT
  Age: 69 Year
  Sex: Female
  Weight: 90.7 kg

DRUGS (6)
  1. NEXIUM [Suspect]
     Indication: GASTROOESOPHAGEAL REFLUX DISEASE
     Route: 048
     Dates: start: 2004
  2. NEXIUM [Suspect]
     Indication: GASTROOESOPHAGEAL REFLUX DISEASE
     Route: 048
  3. FLAXSEED [Concomitant]
     Dosage: DAILY
     Route: 048
     Dates: start: 2005, end: 2009
  4. POTASSIUM [Concomitant]
     Dosage: DAILY
     Route: 048
     Dates: start: 2005, end: 2009
  5. MAGNESIUM [Concomitant]
     Dosage: DAILY
     Route: 048
     Dates: start: 2005, end: 2009
  6. LIPITOR [Concomitant]
     Indication: BLOOD CHOLESTEROL
     Dosage: DAILY
     Route: 048
     Dates: start: 1998

REACTIONS (2)
  - Pancreatic carcinoma [Unknown]
  - Pyrexia [Recovered/Resolved]
